FAERS Safety Report 6881464-0 (Version None)
Quarter: 2010Q3

REPORT INFORMATION
  Report Type: 
  Country: None (occurrence: None)
  Receive Date: 20100728
  Receipt Date: 20100721
  Transmission Date: 20110219
  Serious: Yes (Hospitalization, Other)
  Sender: FDA-Public Use
  Company Number: US-BRISTOL-MYERS SQUIBB COMPANY-15203573

PATIENT
  Age: 82 Year
  Sex: Female

DRUGS (2)
  1. ERBITUX [Suspect]
  2. ATENOLOL [Concomitant]

REACTIONS (5)
  - ARRHYTHMIA [None]
  - DYSPNOEA [None]
  - FALL [None]
  - LOSS OF CONSCIOUSNESS [None]
  - LOWER LIMB FRACTURE [None]
